FAERS Safety Report 6506575-0 (Version None)
Quarter: 2009Q4

REPORT INFORMATION
  Report Type: 
  Country: None (occurrence: None)
  Receive Date: 20091221
  Receipt Date: 20091211
  Transmission Date: 20100525
  Serious: Yes (Other)
  Sender: FDA-Public Use
  Company Number: IE-JNJFOC-20091203786

PATIENT
  Age: 71 Year
  Sex: Female

DRUGS (1)
  1. TAVANIC [Suspect]
     Indication: DRUG USE FOR UNKNOWN INDICATION
     Route: 065
     Dates: start: 20091019

REACTIONS (6)
  - JOINT SPRAIN [None]
  - MUSCLE RUPTURE [None]
  - OEDEMA PERIPHERAL [None]
  - PAIN [None]
  - TENDON RUPTURE [None]
  - TENDONITIS [None]
